FAERS Safety Report 17886156 (Version 3)
Quarter: 2020Q3

REPORT INFORMATION
  Report Type: Spontaneous
  Country: ES (occurrence: ES)
  Receive Date: 20200611
  Receipt Date: 20200706
  Transmission Date: 20201103
  Serious: Yes (Hospitalization)
  Sender: FDA-Public Use
  Company Number: ES-ALLERGAN-2021284US

PATIENT
  Sex: Female

DRUGS (8)
  1. CONSTELLA [Suspect]
     Active Substance: LINACLOTIDE
     Indication: CHRONIC GASTRITIS
     Dosage: 290 ?G, QD
     Route: 048
     Dates: start: 2018, end: 20200515
  2. MOVICOL [Concomitant]
     Active Substance: POLYETHYLENE GLYCOL 3350\POTASSIUM CHLORIDE\SODIUM BICARBONATE\SODIUM CHLORIDE
     Indication: CONSTIPATION
     Dosage: UNK
     Route: 048
  3. CONSTELLA [Suspect]
     Active Substance: LINACLOTIDE
     Indication: DUODENITIS
  4. LEVOGASTROL [Concomitant]
     Active Substance: LEVOSULPIRIDE
     Indication: GASTRITIS
     Dosage: 25 MG, BID
     Route: 048
  5. LORAZEPAM. [Concomitant]
     Active Substance: LORAZEPAM
     Indication: SLEEP DISORDER
     Dosage: 1 MG, QHS
     Route: 048
  6. CONSTELLA [Suspect]
     Active Substance: LINACLOTIDE
     Indication: IRRITABLE BOWEL SYNDROME
     Dosage: 290 ?G, QHS
     Route: 048
     Dates: start: 202005
  7. OPIREN [Concomitant]
     Active Substance: LANSOPRAZOLE
     Indication: GASTRITIS PROPHYLAXIS
     Dosage: 30 MG, QAM
     Route: 048
  8. SIMVASTATINE [Concomitant]
     Active Substance: SIMVASTATIN
     Indication: BLOOD CHOLESTEROL ABNORMAL
     Dosage: 20 MG, QD
     Route: 048

REACTIONS (5)
  - Off label use [Unknown]
  - Product physical issue [Unknown]
  - Intestinal pseudo-obstruction [Recovered/Resolved]
  - Poor quality product administered [Unknown]
  - Intentional dose omission [Unknown]

NARRATIVE: CASE EVENT DATE: 20200516
